FAERS Safety Report 18312972 (Version 1)
Quarter: 2020Q3

REPORT INFORMATION
  Report Type: Spontaneous
  Country: US (occurrence: US)
  Receive Date: 20200925
  Receipt Date: 20200925
  Transmission Date: 20201103
  Serious: Yes (Death, Life-Threatening, Hospitalization)
  Sender: FDA-Public Use
  Company Number: None

PATIENT
  Age: 69 Year
  Sex: Female

DRUGS (2)
  1. METHOTREXATE. [Suspect]
     Active Substance: METHOTREXATE
     Indication: RHEUMATOID ARTHRITIS
     Dosage: ?          QUANTITY:3 TABLET(S);OTHER FREQUENCY:ONCE PER WEEK;?
     Route: 048
     Dates: start: 20200626, end: 20200702
  2. METHOTREXATE. [Suspect]
     Active Substance: METHOTREXATE
     Indication: RHEUMATOID ARTHRITIS
     Route: 048
     Dates: start: 20200430, end: 20200625

REACTIONS (8)
  - Stomatitis [None]
  - Toxicity to various agents [None]
  - Hepatic failure [None]
  - Mental status changes [None]
  - Cardiac failure [None]
  - Renal failure [None]
  - Respiratory failure [None]
  - Pharyngeal ulceration [None]

NARRATIVE: CASE EVENT DATE: 20200701
